FAERS Safety Report 6590451-1 (Version None)
Quarter: 2010Q1

REPORT INFORMATION
  Report Type: 
  Country: None (occurrence: None)
  Receive Date: 20100219
  Receipt Date: 20100215
  Transmission Date: 20100710
  Serious: Yes (Death, Hospitalization, Other)
  Sender: FDA-Public Use
  Company Number: US-TEVA-224734USA

PATIENT
  Age: 56 Year
  Sex: Female

DRUGS (6)
  1. DAUNORUBICIN HYDROCHLORIDE [Suspect]
     Indication: ACUTE MYELOID LEUKAEMIA
  2. CYTARABINE [Suspect]
     Indication: ACUTE MYELOID LEUKAEMIA
  3. PREDNISONE [Concomitant]
  4. ACYCLOVIR [Concomitant]
  5. ATOVAQUONE [Concomitant]
  6. NYSTATIN [Concomitant]

REACTIONS (2)
  - GEOTRICHUM INFECTION [None]
  - NEUTROPENIA [None]
